FAERS Safety Report 4628013-5 (Version None)
Quarter: 2005Q1

REPORT INFORMATION
  Report Type: 
  Country: None (occurrence: None)
  Receive Date: 20050315
  Receipt Date: 20050202
  Transmission Date: 20050727
  Serious: No
  Sender: FDA-Public Use
  Company Number: 200510115BBE

PATIENT
  Age: 48 Year
  Sex: Male
  Weight: 81.6475 kg

DRUGS (3)
  1. GAMUNEX [Suspect]
     Indication: HYPERGAMMAGLOBULINAEMIA
     Dosage: 40 G, OM, INTRAVENOUS
     Route: 042
     Dates: start: 20050201
  2. PREDNISONE [Concomitant]
  3. FOSAMAX [Concomitant]

REACTIONS (4)
  - CHILLS [None]
  - HEADACHE [None]
  - MYALGIA [None]
  - PYREXIA [None]
